FAERS Safety Report 4378093-X (Version None)
Quarter: 2004Q2

REPORT INFORMATION
  Report Type: 
  Country: None (occurrence: None)
  Receive Date: 20040609
  Receipt Date: 20040511
  Transmission Date: 20050107
  Serious: Yes (Other)
  Sender: FDA-Public Use
  Company Number: 200410402BCA

PATIENT
  Age: 80 Year
  Sex: Female

DRUGS (2)
  1. ASPIRIN [Suspect]
     Indication: PAIN
     Dosage: 325 MG, QOD, ORAL
     Route: 048
  2. ASPIRIN [Suspect]
     Indication: PROPHYLAXIS
     Dosage: 325 MG, QOD, ORAL
     Route: 048

REACTIONS (1)
  - MACULAR DEGENERATION [None]
